FAERS Safety Report 4331409-2 (Version None)
Quarter: 2004Q1

REPORT INFORMATION
  Report Type: 
  Country: None (occurrence: None)
  Receive Date: 20040329
  Receipt Date: 20040312
  Transmission Date: 20041129
  Serious: Yes (Hospitalization, Other)
  Sender: FDA-Public Use
  Company Number: 2004017642

PATIENT
  Age: 71 Year
  Sex: Male
  Weight: 74.8435 kg

DRUGS (1)
  1. NEURONTIN [Suspect]
     Indication: NEUROPATHY
     Dosage: 2400 MG (QID), ORAL
     Route: 048
     Dates: start: 20010101

REACTIONS (5)
  - CATHETER RELATED INFECTION [None]
  - CYSTITIS [None]
  - DRY MOUTH [None]
  - SPINAL FUSION SURGERY [None]
  - URINARY HESITATION [None]
